FAERS Safety Report 6878352-2 (Version None)
Quarter: 2010Q3

REPORT INFORMATION
  Report Type: 
  Country: None (occurrence: None)
  Receive Date: 20100728
  Receipt Date: 20100720
  Transmission Date: 20110219
  Serious: Yes (Other)
  Sender: FDA-Public Use
  Company Number: US-PFIZER INC-2010073735

PATIENT
  Sex: Male
  Weight: 66 kg

DRUGS (5)
  1. GENOTROPIN [Suspect]
     Indication: GROWTH HORMONE DEFICIENCY
     Dosage: 2.4 MG, 1X/DAY
     Route: 058
     Dates: start: 20090107
  2. TESTOSTERONE [Concomitant]
     Dosage: UNK
     Dates: start: 20091101
  3. TESTOSTERONE [Concomitant]
     Dosage: UNK
     Dates: start: 20091201
  4. TESTOSTERONE [Concomitant]
     Dosage: UNK
     Dates: start: 20100101
  5. PROZAC [Concomitant]
     Dosage: 20 MG, 1X/DAY
     Route: 048

REACTIONS (4)
  - ANXIETY [None]
  - DEPRESSION [None]
  - FOOT FRACTURE [None]
  - WEIGHT INCREASED [None]
